FAERS Safety Report 7092185-6 (Version None)
Quarter: 2010Q4

REPORT INFORMATION
  Report Type: 
  Country: None (occurrence: None)
  Receive Date: 20101109
  Receipt Date: 20101101
  Transmission Date: 20110411
  Serious: Yes (Hospitalization, Other)
  Sender: FDA-Public Use
  Company Number: US-ABBOTT-10P-163-0682860-00

PATIENT
  Sex: Female
  Weight: 95.34 kg

DRUGS (13)
  1. HUMIRA [Suspect]
     Indication: PSORIASIS
     Route: 058
  2. HUMIRA [Suspect]
     Indication: RHEUMATOID ARTHRITIS
  3. HUMIRA [Suspect]
     Indication: ANKYLOSING SPONDYLITIS
  4. UNKNOWN SLEEPING PILLS [Suspect]
     Indication: PRODUCT USED FOR UNKNOWN INDICATION
  5. SEROQUEL [Concomitant]
     Indication: PRODUCT USED FOR UNKNOWN INDICATION
  6. TRAZODONE [Concomitant]
     Indication: PAIN
  7. ZOCOR [Concomitant]
     Indication: PRODUCT USED FOR UNKNOWN INDICATION
  8. LONG ACTING INSULIN [Concomitant]
     Indication: TYPE 2 DIABETES MELLITUS
  9. SHORT ACTING INSULIN [Concomitant]
     Indication: TYPE 2 DIABETES MELLITUS
  10. LOTENSIN [Concomitant]
     Indication: PRODUCT USED FOR UNKNOWN INDICATION
  11. EXCEDRIN (MIGRAINE) [Concomitant]
     Indication: PRODUCT USED FOR UNKNOWN INDICATION
  12. UNKNOWN HEART MEDICATIONS [Concomitant]
     Indication: PRODUCT USED FOR UNKNOWN INDICATION
  13. UNKNOWN OTHER MEDICATIONS [Concomitant]
     Indication: PRODUCT USED FOR UNKNOWN INDICATION

REACTIONS (13)
  - ANXIETY [None]
  - ATRIAL FIBRILLATION [None]
  - CLOSTRIDIAL INFECTION [None]
  - COMA [None]
  - GASTRIC DISORDER [None]
  - HYPOAESTHESIA [None]
  - ILL-DEFINED DISORDER [None]
  - LIMB INJURY [None]
  - LOSS OF CONSCIOUSNESS [None]
  - PAIN [None]
  - PNEUMONIA [None]
  - PSORIASIS [None]
  - ROAD TRAFFIC ACCIDENT [None]
